FAERS Safety Report 20605775 (Version 1)
Quarter: 2022Q1

REPORT INFORMATION
  Report Type: Spontaneous
  Country: NL (occurrence: NL)
  Receive Date: 20220317
  Receipt Date: 20220317
  Transmission Date: 20220424
  Serious: Yes (Life-Threatening)
  Sender: FDA-Public Use
  Company Number: None

PATIENT
  Age: 55 Year
  Sex: Male

DRUGS (6)
  1. LISINOPRIL [Suspect]
     Active Substance: LISINOPRIL
     Indication: Hypertension
     Dosage: 10 MILLIGRAM DAILY; 1 X PER DAY 1 PIECE
     Dates: start: 2014, end: 20220223
  2. OXAZEPAM [Concomitant]
     Active Substance: OXAZEPAM
     Dosage: 10 MG (MILLIGRAM), THERAPY START DATE AND END DATE : ASKU
  3. PANTOPRAZOLE SODIUM [Concomitant]
     Active Substance: PANTOPRAZOLE SODIUM
     Dosage: 40 MG (MILLIGRAMS), PANTOPRAZOL TABLET MSR, THERAPY START DATE AND END DATE : ASKU
  4. SIMVASTATIN [Concomitant]
     Active Substance: SIMVASTATIN
     Dosage: 20 MG (MILLIGRAMS), SIMVASTATINE TABLET FO 20MG, THERAPY START DATE AND END DATE : ASKU
  5. METFORMIN HYDROCHLORIDE [Concomitant]
     Active Substance: METFORMIN HYDROCHLORIDE
     Dosage: 500 MG (MILLIGRAMS), METFORMINE TABLET MGA , THERAPY START DATE AND END DATE : ASKU
  6. SALBUTAMOL/ VENTOLIN DISKUS [Concomitant]
     Dosage: 200 UG/DOSE (MICROGRAMS PER DOSE), THERAPY START DATE AND END DATE : ASKU, SALBUTAMOL INHALATION PO

REACTIONS (1)
  - Anaphylactic reaction [Unknown]

NARRATIVE: CASE EVENT DATE: 20220223
